FAERS Safety Report 6356345-1 (Version None)
Quarter: 2009Q3

REPORT INFORMATION
  Report Type: 
  Country: None (occurrence: None)
  Receive Date: 20090915
  Receipt Date: 20090908
  Transmission Date: 20100115
  Serious: Yes (Hospitalization, Other)
  Sender: FDA-Public Use
  Company Number: US-ABBOTT-09P-163-0596199-00

PATIENT
  Sex: Female

DRUGS (1)
  1. HUMIRA [Suspect]
     Indication: PSORIASIS
     Route: 058
     Dates: start: 20090818, end: 20090901

REACTIONS (4)
  - BLOOD PRESSURE DECREASED [None]
  - FALL [None]
  - HIP FRACTURE [None]
  - SEPTIC SHOCK [None]
